FAERS Safety Report 14658433 (Version 5)
Quarter: 2019Q3

REPORT INFORMATION
  Report Type: Report from Study
  Country: MX (occurrence: MX)
  Receive Date: 20180320
  Receipt Date: 20190902
  Transmission Date: 20191004
  Serious: Yes (Death, Hospitalization, Other)
  Sender: FDA-Public Use
  Company Number: PHHY2017MX129191

PATIENT
  Age: 32 Year
  Sex: Female
  Weight: 73 kg

DRUGS (10)
  1. TASIGNA [Suspect]
     Active Substance: NILOTINIB
     Indication: CHRONIC MYELOID LEUKAEMIA
     Dosage: 800 MG, UNK
     Route: 048
     Dates: start: 20160916
  2. DASATINIB. [Concomitant]
     Active Substance: DASATINIB
     Indication: PRODUCT USED FOR UNKNOWN INDICATION
     Dosage: UNK
     Route: 065
     Dates: start: 201805, end: 201902
  3. TASIGNA [Suspect]
     Active Substance: NILOTINIB
     Dosage: 800 MG, UNK
     Route: 048
     Dates: start: 201903
  4. PEGINTERFERON ALFA-2B [Concomitant]
     Active Substance: PEGINTERFERON ALFA-2B
     Indication: PRODUCT USED FOR UNKNOWN INDICATION
     Dosage: 100 UG, UNK
     Route: 065
  5. DEXAMETHASONE. [Concomitant]
     Active Substance: DEXAMETHASONE
     Indication: PRODUCT USED FOR UNKNOWN INDICATION
     Route: 065
  6. DAUNORUBICIN [Concomitant]
     Active Substance: DAUNORUBICIN
     Indication: PRODUCT USED FOR UNKNOWN INDICATION
     Route: 065
  7. TASIGNA [Suspect]
     Active Substance: NILOTINIB
     Dosage: 400 MG, EVERY 12 HOURS
     Route: 048
     Dates: start: 20160930, end: 20180316
  8. TASIGNA [Suspect]
     Active Substance: NILOTINIB
     Dosage: 400 MG, EVERY 12 HOURS
     Route: 048
     Dates: start: 20190320, end: 20190801
  9. HYDROXYCARBAMIDE [Concomitant]
     Active Substance: HYDROXYUREA
     Indication: PRODUCT USED FOR UNKNOWN INDICATION
     Dosage: 500 MG, UNK
     Route: 048
  10. INTERFERON [Concomitant]
     Active Substance: INTERFERON
     Indication: PRODUCT USED FOR UNKNOWN INDICATION
     Dosage: 180 UG, EVERY 10 DAYS FOR 4 DAYS
     Route: 048

REACTIONS (12)
  - Chronic myeloid leukaemia transformation [Fatal]
  - Thrombocytopenia [Unknown]
  - Normal newborn [Unknown]
  - Hepatosplenomegaly [Fatal]
  - Maternal exposure during pregnancy [Unknown]
  - Alanine aminotransferase decreased [Unknown]
  - Acute abdomen [Fatal]
  - Blood lactate dehydrogenase increased [Fatal]
  - Neutrophil count decreased [Fatal]
  - Asthenia [Fatal]
  - Anaemia [Fatal]
  - Aspartate aminotransferase decreased [Unknown]

NARRATIVE: CASE EVENT DATE: 20170825
